FAERS Safety Report 21045845 (Version 2)
Quarter: 2022Q4

REPORT INFORMATION
  Report Type: Spontaneous
  Country: US (occurrence: US)
  Receive Date: 20220706
  Receipt Date: 20221210
  Transmission Date: 20230112
  Serious: Yes (Death, Other)
  Sender: FDA-Public Use
  Company Number: US-BRISTOL-MYERS SQUIBB COMPANY-2022-067803

PATIENT
  Age: 55 Year
  Sex: Male

DRUGS (1)
  1. OPDIVO [Suspect]
     Active Substance: NIVOLUMAB
     Indication: Neoplasm malignant
     Dosage: DOSE : 480 MG;     FREQ : ^ONCE EVERY 4 WEEKS^
     Route: 042
     Dates: start: 20220224, end: 20220615

REACTIONS (2)
  - Death [Fatal]
  - Intentional product use issue [Unknown]
